FAERS Safety Report 9200916 (Version 5)
Quarter: 2014Q3

REPORT INFORMATION
  Report Type: Spontaneous
  Country: US (occurrence: US)
  Receive Date: 20130401
  Receipt Date: 20140801
  Transmission Date: 20150326
  Serious: Yes (Hospitalization, Disabling, Other)
  Sender: FDA-Public Use
  Company Number: US-BAYER-2013-039916

PATIENT
  Age: 22 Year
  Sex: Female
  Weight: 90.7 kg

DRUGS (3)
  1. ALBUTEROL SULFATE. [Concomitant]
     Active Substance: ALBUTEROL SULFATE
     Dosage: UNK
     Dates: start: 20100426, end: 20100708
  2. PROTONIX [Concomitant]
     Active Substance: PANTOPRAZOLE SODIUM
     Dosage: UNK
     Dates: start: 20100517, end: 20100615
  3. MIRENA [Suspect]
     Active Substance: LEVONORGESTREL
     Indication: CONTRACEPTION
     Dosage: 20 MCG/24HR, CONT
     Route: 015
     Dates: start: 201008, end: 20101027

REACTIONS (13)
  - Uterine perforation [None]
  - Anxiety [None]
  - Injury [None]
  - Emotional distress [None]
  - Genital haemorrhage [None]
  - General physical health deterioration [None]
  - Migraine [None]
  - Gastrointestinal injury [None]
  - Pain [None]
  - Device dislocation [None]
  - Anhedonia [None]
  - Deformity [None]
  - Fear of death [None]

NARRATIVE: CASE EVENT DATE: 201008
